FAERS Safety Report 17889553 (Version 1)
Quarter: 2020Q2

REPORT INFORMATION
  Report Type: Spontaneous
  Country: LV (occurrence: LV)
  Receive Date: 20200612
  Receipt Date: 20200612
  Transmission Date: 20200714
  Serious: Yes (Other)
  Sender: FDA-Public Use
  Company Number: LV-009507513-2006LVA002555

PATIENT
  Age: 48 Year
  Sex: Male

DRUGS (1)
  1. ZEPATIER [Suspect]
     Active Substance: ELBASVIR\GRAZOPREVIR
     Indication: HEPATITIS C
     Dosage: UNK
     Route: 048
     Dates: start: 20191126, end: 20200218

REACTIONS (2)
  - Treatment failure [Unknown]
  - HIV infection [Unknown]

NARRATIVE: CASE EVENT DATE: 20200520
